FAERS Safety Report 24137952 (Version 1)
Quarter: 2024Q3

REPORT INFORMATION
  Report Type: Report from Study
  Country: CA (occurrence: None)
  Receive Date: 20240725
  Receipt Date: 20240725
  Transmission Date: 20241017
  Serious: Yes (Hospitalization)
  Sender: ASTRAZENECA
  Company Number: 2024A164880

PATIENT
  Age: 27678 Day
  Sex: Female

DRUGS (5)
  1. TEZSPIRE [Suspect]
     Active Substance: TEZEPELUMAB-EKKO
     Indication: Asthma
     Dosage: 210.0MG UNKNOWN
     Route: 058
     Dates: start: 20240425
  2. ALVESCO [Concomitant]
     Active Substance: CICLESONIDE
     Dosage: 200 MCG 2 INH BID
  3. FORMOTEROL FUMARATE [Concomitant]
     Active Substance: FORMOTEROL FUMARATE
     Dosage: 12 UCG BID
  4. SINGULAIR [Concomitant]
     Active Substance: MONTELUKAST SODIUM
     Dosage: 10MG ID
  5. SPIRIVA RESPIMAT [Concomitant]
     Active Substance: TIOTROPIUM BROMIDE
     Dosage: 2.5 MG 2 INH ID

REACTIONS (3)
  - Pneumonia [Unknown]
  - Cerebrovascular accident [Unknown]
  - Arrhythmia [Unknown]

NARRATIVE: CASE EVENT DATE: 20240714
